FAERS Safety Report 10206057 (Version 1)
Quarter: 2014Q2

REPORT INFORMATION
  Report Type: Spontaneous
  Country: US (occurrence: US)
  Receive Date: 20140530
  Receipt Date: 20140530
  Transmission Date: 20141212
  Serious: No
  Sender: FDA-Public Use
  Company Number: US-PFIZER INC-2014147013

PATIENT
  Age: 85 Year
  Sex: Female
  Weight: 63.5 kg

DRUGS (2)
  1. LYRICA [Suspect]
     Indication: HYPERTENSION
     Dosage: 75 MG, 2X/DAY
     Dates: start: 201405
  2. LYRICA [Suspect]
     Indication: DIABETES MELLITUS

REACTIONS (1)
  - Peripheral swelling [Unknown]
